FAERS Safety Report 7883491-3 (Version None)
Quarter: 2011Q4

REPORT INFORMATION
  Report Type: 
  Country: None (occurrence: None)
  Receive Date: 20111102
  Receipt Date: 20110202
  Transmission Date: 20120403
  Serious: No
  Sender: FDA-Public Use
  Company Number: US-GLAXOSMITHKLINE-A0911456A

PATIENT
  Age: 76 Year
  Sex: Male

DRUGS (7)
  1. ATENOLOL [Concomitant]
  2. POTASSIUM CHLORIDE [Concomitant]
  3. COUMADIN [Concomitant]
  4. LASIX [Concomitant]
  5. PLAVIX [Concomitant]
  6. RYTHMOL SR [Suspect]
     Indication: ATRIAL FIBRILLATION
     Dosage: 325MG TWICE PER DAY
     Route: 048
     Dates: start: 20080101, end: 20110101
  7. MAXZIDE [Concomitant]

REACTIONS (4)
  - CHEST DISCOMFORT [None]
  - HEART RATE INCREASED [None]
  - DRUG INEFFECTIVE [None]
  - SWELLING [None]
